FAERS Safety Report 5933694-X (Version None)
Quarter: 2008Q4

REPORT INFORMATION
  Report Type: 
  Country: None (occurrence: None)
  Receive Date: 20081024
  Receipt Date: 20081016
  Transmission Date: 20090506
  Serious: Yes (Disabling, Other)
  Sender: FDA-Public Use
  Company Number: 08H-087-0315071-00

PATIENT
  Age: 24 Year
  Sex: Female
  Weight: 52 kg

DRUGS (6)
  1. DEXMEDETOMIDINE INJECTION (DEXMEDETOMIDINE HYDROCHLORIDE INJECTION) (D [Suspect]
     Indication: SEDATIVE THERAPY
     Dosage: 6 MCG/KG/HR, INTRAVENOUS; 0.4 MCG/KG/HR, INTRAVENOUS; 0.3 MCG/KG/HR, INTRAVENOUS
     Route: 042
  2. BUTORPHANOL TARATRATE [Suspect]
     Indication: SEDATIVE THERAPY
     Dosage: 0.06 MG/KG/HR,; 0.004 MG/KG/HR,; 0.003 MG/KG/HR,
  3. SEVOFLURANE [Concomitant]
  4. NITROUS OXIDE W/ OXYGEN [Concomitant]
  5. PROSTAGLANDIN E1 (ALPROSTADIL) [Concomitant]
  6. 50% OXYGEN (OXYGEN) [Concomitant]

REACTIONS (2)
  - BRADYCARDIA [None]
  - RESPIRATORY DEPRESSION [None]
